FAERS Safety Report 12338527 (Version 1)
Quarter: 2016Q2

REPORT INFORMATION
  Report Type: Report from Study
  Country: PL (occurrence: PL)
  Receive Date: 20160505
  Receipt Date: 20160505
  Transmission Date: 20160815
  Serious: Yes (Hospitalization)
  Sender: FDA-Public Use
  Company Number: PL-EISAI MEDICAL RESEARCH-EC-2016-016536

PATIENT
  Age: 47 Year
  Sex: Female

DRUGS (9)
  1. DEXAMETHAZONE [Concomitant]
     Active Substance: DEXAMETHASONE
  2. XGEVA [Concomitant]
     Active Substance: DENOSUMAB
  3. METFORMAX [Concomitant]
     Active Substance: METFORMIN HYDROCHLORIDE
  4. ONDANSETRON [Concomitant]
     Active Substance: ONDANSETRON
  5. ERIBULIN [Suspect]
     Active Substance: ERIBULIN
     Indication: BREAST CANCER
     Route: 041
     Dates: start: 20121026, end: 20121126
  6. MORFINE [Concomitant]
     Active Substance: MORPHINE
  7. EUTHYROX [Concomitant]
     Active Substance: LEVOTHYROXINE SODIUM
  8. LORAZEPAM. [Concomitant]
     Active Substance: LORAZEPAM
  9. CLEXANE [Concomitant]
     Active Substance: ENOXAPARIN SODIUM

REACTIONS (1)
  - Anaemia [Recovered/Resolved]

NARRATIVE: CASE EVENT DATE: 20121031
